FAERS Safety Report 9464477 (Version 1)
Quarter: 2013Q3

REPORT INFORMATION
  Report Type: Spontaneous
  Country: UA (occurrence: UA)
  Receive Date: 20130819
  Receipt Date: 20130819
  Transmission Date: 20140515
  Serious: Yes (Death, Life-Threatening)
  Sender: FDA-Public Use
  Company Number: UA-ASTRAZENECA-2013SE63905

PATIENT
  Age: 26096 Day
  Sex: Male
  Weight: 85 kg

DRUGS (10)
  1. BRILINTA [Suspect]
     Indication: ACUTE CORONARY SYNDROME
     Route: 048
     Dates: start: 20130803
  2. ASPIRIN [Concomitant]
     Route: 048
  3. FLENOKS [Concomitant]
     Dosage: 0.8 ML - 8 000 INTERNATIONAL UNITS, BOLUS
  4. HEPARIN [Concomitant]
     Dosage: IN TOTAL 20 000 UNITS, BOLUS, DIVIDED IN 2 ADMISSION, 10 000 UNITS EACH
  5. SPASMALGON [Concomitant]
     Route: 030
  6. CONCOR [Concomitant]
     Route: 048
  7. PRESTARIUM [Concomitant]
     Route: 048
  8. ATORIS [Concomitant]
     Route: 048
  9. MORPHINE [Concomitant]
  10. DIABETON [Concomitant]
     Indication: TYPE 2 DIABETES MELLITUS

REACTIONS (3)
  - Myocardial infarction [Fatal]
  - Thrombosis in device [Unknown]
  - Drug ineffective [Unknown]
